FAERS Safety Report 5131397-5 (Version None)
Quarter: 2006Q4

REPORT INFORMATION
  Report Type: 
  Country: None (occurrence: None)
  Receive Date: 20061020
  Receipt Date: 20061018
  Transmission Date: 20070319
  Serious: Yes (Hospitalization)
  Sender: FDA-Public Use
  Company Number: US-GLAXOSMITHKLINE-A0624051A

PATIENT
  Sex: Female

DRUGS (3)
  1. PAXIL CR [Suspect]
     Dosage: 50MG PER DAY
     Route: 048
  2. NEXIUM [Concomitant]
  3. TOPROL-XL [Concomitant]

REACTIONS (3)
  - NORMAL DELIVERY [None]
  - PLACENTA PRAEVIA [None]
  - UTERINE CONTRACTIONS ABNORMAL [None]
